FAERS Safety Report 7647630-1 (Version None)
Quarter: 2011Q3

REPORT INFORMATION
  Report Type: 
  Country: None (occurrence: None)
  Receive Date: 20110801
  Receipt Date: 20110801
  Transmission Date: 20111222
  Serious: Yes (Other)
  Sender: FDA-Public Use
  Company Number: None

PATIENT
  Sex: Male
  Weight: 88.43 kg

DRUGS (1)
  1. GEODON [Suspect]
     Indication: AFFECTIVE DISORDER
     Dosage: 10MG
     Route: 030
     Dates: start: 20110727, end: 20110727

REACTIONS (2)
  - PANIC REACTION [None]
  - OCULOGYRIC CRISIS [None]
